FAERS Safety Report 7432266-8 (Version None)
Quarter: 2011Q2

REPORT INFORMATION
  Report Type: 
  Country: None (occurrence: None)
  Receive Date: 20110422
  Receipt Date: 20110418
  Transmission Date: 20111010
  Serious: Yes (Life-Threatening, Hospitalization)
  Sender: FDA-Public Use
  Company Number: JP-SANOFI-AVENTIS-2011SA008052

PATIENT
  Age: 82 Year
  Sex: Male
  Weight: 59 kg

DRUGS (24)
  1. PLAVIX [Suspect]
     Route: 048
     Dates: start: 20090615, end: 20090615
  2. MAGNESIUM OXIDE [Concomitant]
     Indication: CONSTIPATION
     Route: 048
     Dates: start: 20100121
  3. NOVOLIN R [Concomitant]
     Indication: DIABETES MELLITUS
     Dosage: DOSE:10 UNIT(S)
     Route: 051
     Dates: start: 20100316, end: 20100609
  4. SIGMART [Concomitant]
     Route: 065
     Dates: start: 20090615, end: 20090615
  5. SIGMART [Concomitant]
     Route: 065
     Dates: start: 20100402, end: 20100407
  6. AMARYL [Concomitant]
     Indication: DIABETES MELLITUS
     Route: 048
     Dates: start: 20090617, end: 20090710
  7. HANP [Concomitant]
     Route: 051
     Dates: start: 20100327, end: 20100411
  8. ASPIRIN [Concomitant]
     Route: 048
     Dates: start: 20090616, end: 20100319
  9. VOGLIBOSE [Concomitant]
     Indication: DIABETES MELLITUS
     Route: 048
     Dates: start: 20090619, end: 20100210
  10. OMEPRAL [Concomitant]
     Indication: PROPHYLAXIS
     Route: 048
     Dates: start: 20090616
  11. ASPIRIN [Concomitant]
     Route: 048
     Dates: start: 20100408
  12. SIGMART [Concomitant]
     Route: 048
     Dates: start: 20090616
  13. TAMSULOSIN HCL [Concomitant]
     Indication: BENIGN PROSTATIC HYPERPLASIA
     Route: 048
     Dates: start: 20090629, end: 20100408
  14. LASIX [Concomitant]
     Route: 051
     Dates: start: 20100331, end: 20100405
  15. PLAVIX [Suspect]
     Route: 048
     Dates: start: 20090616, end: 20100319
  16. AMARYL [Concomitant]
     Route: 048
     Dates: start: 20100610
  17. TORSEMIDE [Concomitant]
     Route: 048
     Dates: start: 20100121, end: 20100408
  18. DOPAMINE HYDROCHLORIDE [Concomitant]
     Route: 051
     Dates: start: 20100327, end: 20100404
  19. CALBLOCK [Concomitant]
     Indication: HYPERTENSION
     Route: 048
     Dates: start: 20090616, end: 20100408
  20. AMARYL [Concomitant]
     Route: 048
     Dates: start: 20090711, end: 20100210
  21. HEPARIN [Concomitant]
     Dosage: DOSE:15000 UNIT(S)
     Route: 042
     Dates: start: 20100328, end: 20100329
  22. HEPARIN [Concomitant]
     Dosage: DOSE:15000 UNIT(S)
     Route: 042
     Dates: start: 20100330, end: 20100401
  23. PLAVIX [Suspect]
     Route: 048
     Dates: start: 20100408
  24. HEPARIN [Concomitant]
     Dosage: DOSE:13000 UNIT(S)
     Route: 042
     Dates: start: 20100327, end: 20100327

REACTIONS (5)
  - DIABETIC GANGRENE [None]
  - CELLULITIS [None]
  - CORONARY ARTERY STENOSIS [None]
  - ARTERIOSCLEROSIS OBLITERANS [None]
  - DISSEMINATED INTRAVASCULAR COAGULATION [None]
